FAERS Safety Report 5743298-X (Version None)
Quarter: 2008Q2

REPORT INFORMATION
  Report Type: 
  Country: None (occurrence: None)
  Receive Date: 20080519
  Receipt Date: 20080514
  Transmission Date: 20081010
  Serious: Yes (Other)
  Sender: FDA-Public Use
  Company Number: US-PFIZER INC-2007070598

PATIENT
  Sex: Female
  Weight: 63.181 kg

DRUGS (2)
  1. CHANTIX [Suspect]
     Indication: SMOKING CESSATION THERAPY
  2. ALL OTHER THERAPEUTIC PRODUCTS [Interacting]

REACTIONS (5)
  - BRONCHITIS [None]
  - DRUG INTERACTION [None]
  - HYPERSENSITIVITY [None]
  - MACULAR DEGENERATION [None]
  - VISUAL DISTURBANCE [None]
